FAERS Safety Report 11008301 (Version 2)
Quarter: 2015Q3

REPORT INFORMATION
  Report Type: Report from Study
  Country: US (occurrence: US)
  Receive Date: 20150410
  Receipt Date: 20150807
  Transmission Date: 20151125
  Serious: No
  Sender: FDA-Public Use
  Company Number: US-AMGEN-USASL2015033788

PATIENT
  Age: 57 Year
  Sex: Female

DRUGS (1)
  1. ENBREL [Suspect]
     Active Substance: ETANERCEPT
     Indication: PSORIASIS
     Dosage: 50 MG, 2 TIMES/WK
     Route: 065
     Dates: start: 20150203, end: 201503

REACTIONS (10)
  - Skin discolouration [Not Recovered/Not Resolved]
  - Macule [Not Recovered/Not Resolved]
  - Skin plaque [Not Recovered/Not Resolved]
  - Dysphagia [Unknown]
  - Intervertebral disc compression [Unknown]
  - Pain in extremity [Unknown]
  - Pruritus [Not Recovered/Not Resolved]
  - Increased tendency to bruise [Not Recovered/Not Resolved]
  - Tremor [Unknown]
  - Neck pain [Unknown]

NARRATIVE: CASE EVENT DATE: 2015
